FAERS Safety Report 6456013-1 (Version None)
Quarter: 2009Q4

REPORT INFORMATION
  Report Type: 
  Country: None (occurrence: None)
  Receive Date: 20091125
  Receipt Date: 20091116
  Transmission Date: 20100525
  Serious: Yes (Other)
  Sender: FDA-Public Use
  Company Number: US-JNJFOC-20091105353

PATIENT
  Sex: Female
  Weight: 77.11 kg

DRUGS (6)
  1. DURAGESIC-100 [Suspect]
     Indication: FIBROMYALGIA
     Route: 062
  2. DURAGESIC-100 [Suspect]
     Route: 062
  3. ATENOLOL [Concomitant]
     Indication: HEART RATE INCREASED
     Route: 048
  4. NEXIUM [Concomitant]
     Indication: GASTROOESOPHAGEAL REFLUX DISEASE
     Route: 048
  5. BUMETANIDE [Concomitant]
     Indication: DIURETIC THERAPY
     Route: 048
  6. LORTAB [Concomitant]
     Indication: BREAKTHROUGH PAIN
     Route: 048

REACTIONS (8)
  - APPLICATION SITE REACTION [None]
  - BLOOD CHOLESTEROL INCREASED [None]
  - DIABETES MELLITUS [None]
  - DRUG INEFFECTIVE [None]
  - FALL [None]
  - HYPERTENSION [None]
  - RENAL DISORDER [None]
  - RIB FRACTURE [None]
